FAERS Safety Report 19077084 (Version 3)
Quarter: 2023Q4

REPORT INFORMATION
  Report Type: Spontaneous
  Country: DE (occurrence: DE)
  Receive Date: 20210331
  Receipt Date: 20231218
  Transmission Date: 20240110
  Serious: Yes (Other)
  Sender: FDA-Public Use
  Company Number: DE-ALKEM LABORATORIES LIMITED-DE-ALKEM-2021-01153

PATIENT
  Age: 34 Year
  Sex: Male

DRUGS (16)
  1. MORPHINE SULFATE [Interacting]
     Active Substance: MORPHINE SULFATE
     Indication: Product used for unknown indication
     Dosage: UNK
     Route: 065
  2. PREGABALIN [Interacting]
     Active Substance: PREGABALIN
     Indication: Product used for unknown indication
     Dosage: UNK
     Route: 065
  3. TEMAZEPAM [Interacting]
     Active Substance: TEMAZEPAM
     Indication: Product used for unknown indication
     Dosage: UNK
     Route: 065
  4. .ALPHA.-PYRROLIDINOVALEROTHIOPHENONE [Suspect]
     Active Substance: .ALPHA.-PYRROLIDINOVALEROTHIOPHENONE
     Indication: Product used for unknown indication
     Dosage: UNK
     Route: 065
  5. ALPRAZOLAM [Interacting]
     Active Substance: ALPRAZOLAM
     Indication: Product used for unknown indication
     Dosage: UNK
     Route: 065
  6. BENZOYLECGONINE [Interacting]
     Active Substance: BENZOYLECGONINE
     Indication: Product used for unknown indication
     Dosage: UNK
     Route: 065
  7. COCAINE [Interacting]
     Active Substance: COCAINE
     Indication: Product used for unknown indication
     Dosage: UNK
     Route: 065
  8. CODEINE [Interacting]
     Active Substance: CODEINE
     Indication: Product used for unknown indication
     Dosage: UNK
     Route: 065
  9. DIAZEPAM [Interacting]
     Active Substance: DIAZEPAM
     Indication: Product used for unknown indication
     Dosage: UNK
     Route: 065
  10. ECGONINE [Interacting]
     Active Substance: ECGONINE
     Indication: Product used for unknown indication
     Dosage: UNK
     Route: 065
  11. LEVOMETHADONE [Interacting]
     Active Substance: LEVOMETHADONE
     Indication: Product used for unknown indication
     Dosage: UNK
     Route: 065
  12. LORAZEPAM [Interacting]
     Active Substance: LORAZEPAM
     Indication: Product used for unknown indication
     Dosage: UNK
     Route: 065
  13. MIRTAZAPINE [Interacting]
     Active Substance: MIRTAZAPINE
     Indication: Product used for unknown indication
     Dosage: UNK
     Route: 065
  14. NORDAZEPAM [Interacting]
     Active Substance: NORDAZEPAM
     Indication: Product used for unknown indication
     Dosage: UNK
     Route: 065
  15. OXAZEPAM [Interacting]
     Active Substance: OXAZEPAM
     Indication: Product used for unknown indication
     Dosage: UNK
     Route: 065
  16. SERTRALINE [Interacting]
     Active Substance: SERTRALINE HYDROCHLORIDE
     Indication: Product used for unknown indication
     Dosage: UNK
     Route: 065

REACTIONS (10)
  - Drug abuse [Unknown]
  - Drug dependence [Unknown]
  - Adverse drug reaction [Unknown]
  - Sluggishness [Unknown]
  - Vestibular disorder [Unknown]
  - Bradykinesia [Unknown]
  - Drug interaction [Unknown]
  - Restlessness [Unknown]
  - Dysarthria [Unknown]
  - Gait disturbance [Unknown]
